FAERS Safety Report 11676490 (Version 1)
Quarter: 2015Q4

REPORT INFORMATION
  Report Type: Spontaneous
  Country: US (occurrence: US)
  Receive Date: 20151028
  Receipt Date: 20151028
  Transmission Date: 20160304
  Serious: No
  Sender: FDA-Public Use
  Company Number: US-ASTRAZENECA-2015SF00981

PATIENT
  Sex: Female
  Weight: 63 kg

DRUGS (7)
  1. TRIAMTERENE/HCT [Concomitant]
     Indication: BLOOD PRESSURE MEASUREMENT
     Route: 048
     Dates: start: 2005
  2. METOPROLOL [Suspect]
     Active Substance: METOPROLOL
     Indication: BLOOD PRESSURE MEASUREMENT
     Route: 048
     Dates: start: 2000
  3. TRIAMTERENE/HCT [Concomitant]
     Indication: DIURETIC THERAPY
     Route: 048
     Dates: start: 2005
  4. POTASSIUM [Concomitant]
     Active Substance: POTASSIUM
     Indication: BLOOD POTASSIUM DECREASED
     Route: 048
     Dates: start: 201505
  5. LIPITOR [Concomitant]
     Active Substance: ATORVASTATIN CALCIUM
  6. CRESTOR [Suspect]
     Active Substance: ROSUVASTATIN CALCIUM
     Indication: BLOOD CHOLESTEROL
     Route: 048
     Dates: start: 200308
  7. GENERIC PROTONIX [Concomitant]
     Indication: HIATUS HERNIA
     Route: 048

REACTIONS (4)
  - Palpitations [Unknown]
  - Blood cholesterol increased [Unknown]
  - Blood potassium decreased [Unknown]
  - Intentional product misuse [Recovered/Resolved]
